FAERS Safety Report 21811870 (Version 3)
Quarter: 2023Q1

REPORT INFORMATION
  Report Type: Spontaneous
  Country: US (occurrence: US)
  Receive Date: 20230103
  Receipt Date: 20230224
  Transmission Date: 20230417
  Serious: No
  Sender: FDA-Public Use
  Company Number: US-SA-SAC20230102000992

PATIENT
  Age: 53 Year
  Sex: Female
  Weight: 84.8 kg

DRUGS (2)
  1. DUPIXENT [Suspect]
     Active Substance: DUPILUMAB
     Indication: Dermatitis atopic
     Dosage: 300 MG, QOW
     Route: 058
     Dates: start: 20221114
  2. TRANEXAMIC ACID [Suspect]
     Active Substance: TRANEXAMIC ACID
     Dosage: UNK

REACTIONS (23)
  - Headache [Not Recovered/Not Resolved]
  - Dry skin [Recovering/Resolving]
  - Acne [Recovering/Resolving]
  - Thirst [Recovering/Resolving]
  - Eye pain [Not Recovered/Not Resolved]
  - Ocular discomfort [Not Recovered/Not Resolved]
  - Skin infection [Not Recovered/Not Resolved]
  - Fatigue [Not Recovered/Not Resolved]
  - Asthenia [Not Recovered/Not Resolved]
  - Foreign body sensation in eyes [Not Recovered/Not Resolved]
  - Wound [Not Recovered/Not Resolved]
  - Wound secretion [Not Recovered/Not Resolved]
  - Pruritus [Recovering/Resolving]
  - Skin burning sensation [Recovering/Resolving]
  - Rash [Recovering/Resolving]
  - Dry skin [Recovering/Resolving]
  - Skin discolouration [Recovering/Resolving]
  - Pain [Recovering/Resolving]
  - Skin tightness [Recovering/Resolving]
  - Choking sensation [Recovering/Resolving]
  - Dermatitis atopic [Not Recovered/Not Resolved]
  - Product dose omission issue [Not Recovered/Not Resolved]
  - Drug ineffective [Unknown]

NARRATIVE: CASE EVENT DATE: 20221227
